FAERS Safety Report 7477596-9 (Version None)
Quarter: 2011Q2

REPORT INFORMATION
  Report Type: 
  Country: None (occurrence: None)
  Receive Date: 20110511
  Receipt Date: 20110511
  Transmission Date: 20111010
  Serious: Yes (Life-Threatening, Hospitalization, Disabling, Other)
  Sender: FDA-Public Use
  Company Number: None

PATIENT
  Age: 23 Year
  Sex: Female
  Weight: 81.6475 kg

DRUGS (3)
  1. PITOCIN [Concomitant]
  2. CYTOTEC [Suspect]
     Indication: INDUCED LABOUR
     Dosage: VAG
     Route: 067
     Dates: start: 20060224, end: 20060226
  3. CERVADIL [Concomitant]

REACTIONS (6)
  - POSTPARTUM HAEMORRHAGE [None]
  - CONTRAINDICATION TO MEDICAL TREATMENT [None]
  - DRUG EXPOSURE DURING PREGNANCY [None]
  - SEPSIS [None]
  - CAESAREAN SECTION [None]
  - UTERINE RUPTURE [None]
